FAERS Safety Report 9480966 (Version 1)
Quarter: 2013Q3

REPORT INFORMATION
  Report Type: Spontaneous
  Country: US (occurrence: US)
  Receive Date: 20130828
  Receipt Date: 20130828
  Transmission Date: 20140515
  Serious: Yes (Other)
  Sender: FDA-Public Use
  Company Number: US-AMGEN-KDL143195

PATIENT
  Age: 55 Year
  Sex: Female

DRUGS (3)
  1. ENBREL [Suspect]
     Indication: RHEUMATOID ARTHRITIS
     Dosage: 50 MG, QWK
     Route: 058
     Dates: start: 20040628
  2. ISONIAZID [Concomitant]
     Dosage: UNK UNK, UNK
     Dates: start: 200410
  3. METHOTREXATE [Concomitant]

REACTIONS (2)
  - Tuberculin test positive [Not Recovered/Not Resolved]
  - Hepatic enzyme increased [Unknown]
